FAERS Safety Report 11383850 (Version 2)
Quarter: 2015Q3

REPORT INFORMATION
  Report Type: Spontaneous
  Country: AU (occurrence: AU)
  Receive Date: 20150814
  Receipt Date: 20150820
  Transmission Date: 20151125
  Serious: Yes (Other)
  Sender: FDA-Public Use
  Company Number: PHHY2015AU096635

PATIENT
  Age: 78 Year
  Sex: Male

DRUGS (1)
  1. CLOZAPINE. [Suspect]
     Active Substance: CLOZAPINE
     Indication: PRODUCT USED FOR UNKNOWN INDICATION
     Dosage: 350 MG, UNK
     Route: 048

REACTIONS (5)
  - Myoclonus [Unknown]
  - Tremor [Unknown]
  - Stupor [Recovered/Resolved]
  - Delirium [Recovered/Resolved]
  - Dyskinesia [Unknown]
